FAERS Safety Report 10213592 (Version 1)
Quarter: 2014Q2

REPORT INFORMATION
  Report Type: Spontaneous
  Country: AR (occurrence: None)
  Receive Date: 20140530
  Receipt Date: 20140530
  Transmission Date: 20141212
  Serious: Yes (Death)
  Sender: FDA-Public Use
  Company Number: 2014AR00495

PATIENT
  Sex: 0

DRUGS (5)
  1. CARBOPLATIN (CARBOPLATIN) INJECTION [Suspect]
     Indication: CONGENITAL RETINOBLASTOMA
     Dosage: 18.7 MG/KG (OR 500 MG/M2 IF WEIGHED MORE THAN 12 MG) ON DAY 1
  2. VINCRISTINE (VINCRISTINE) [Suspect]
     Indication: CONGENITAL RETINOBLASTOMA
     Dosage: 0.05 MG/KG (OR 1.5 MG/M2 IF WEIGHED MORE THAN 12MG , MAXIMUM DOSE 2 MG
  3. ETOPOSIDE  (ETOPOSIDE) [Suspect]
     Indication: CONGENITAL RETINOBLASTOMA
     Dosage: 3.3 MG/KG/DAY (OR 100 MG/M2 IF WEIGHED MORE THAN 12 KG) ON DAYS 1 AND 2
  4. TOPOTECAN (TOPOTECAN) [Suspect]
     Indication: CONGENITAL RETINOBLASTOMA
  5. EXTERNAL BEAM RADIOTHERAPY (EXTERNAL BEAM RADIOTHERAPY) [Suspect]
     Indication: CONGENITAL RETINOBLASTOMA
     Dosage: 45 GY

REACTIONS (2)
  - Retinoblastoma [None]
  - Malignant neoplasm progression [None]
